FAERS Safety Report 25690689 (Version 1)
Quarter: 2025Q3

REPORT INFORMATION
  Report Type: Spontaneous
  Country: EU (occurrence: EU)
  Receive Date: 20250818
  Receipt Date: 20250818
  Transmission Date: 20251021
  Serious: Yes (Other)
  Sender: NOVO NORDISK
  Company Number: None

PATIENT
  Age: 59 Year
  Sex: Male
  Weight: 63 kg

DRUGS (1)
  1. OZEMPIC [Suspect]
     Active Substance: SEMAGLUTIDE
     Indication: Type 2 diabetes mellitus
     Dosage: 0.25 MG, QW
     Route: 030
     Dates: start: 20250115

REACTIONS (3)
  - Optic ischaemic neuropathy [Recovering/Resolving]
  - Optic neuritis [Recovering/Resolving]
  - Visual field defect [Recovering/Resolving]

NARRATIVE: CASE EVENT DATE: 20250724
